FAERS Safety Report 10186727 (Version 2)
Quarter: 2014Q2

REPORT INFORMATION
  Report Type: Report from Study
  Country: RU (occurrence: RU)
  Receive Date: 20140521
  Receipt Date: 20140530
  Transmission Date: 20141212
  Serious: Yes (Other)
  Sender: FDA-Public Use
  Company Number: PHHY2014RU060372

PATIENT
  Age: 52 Year
  Sex: Female

DRUGS (3)
  1. ACLASTA [Suspect]
     Indication: OSTEOPOROSIS
     Dosage: UNK
     Route: 042
     Dates: start: 2012
  2. ACLASTA [Suspect]
     Dosage: UNK
     Route: 042
     Dates: start: 2013
  3. ACLASTA [Suspect]
     Dosage: UNK
     Route: 042

REACTIONS (2)
  - Fall [Unknown]
  - Foot fracture [Recovering/Resolving]
